FAERS Safety Report 21203705 (Version 6)
Quarter: 2022Q4

REPORT INFORMATION
  Report Type: Report from Study
  Country: US (occurrence: US)
  Receive Date: 20220811
  Receipt Date: 20221228
  Transmission Date: 20230113
  Serious: Yes (Other)
  Sender: FDA-Public Use
  Company Number: NVSC2022US181874

PATIENT
  Age: 52 Year
  Sex: Female

DRUGS (4)
  1. COSENTYX [Suspect]
     Active Substance: SECUKINUMAB
     Indication: Psoriasis
     Dosage: 300 MG, QW
     Route: 058
     Dates: start: 20220802
  2. COSENTYX [Suspect]
     Active Substance: SECUKINUMAB
     Dosage: 300 MG, OTHER
     Route: 065
  3. COSENTYX [Suspect]
     Active Substance: SECUKINUMAB
     Dosage: UNK, QW (Q WEEK FOR FIVE WEEKS AND THEN Q FOUR WEEKS)
     Route: 058
     Dates: start: 20220808
  4. LITHIUM [Concomitant]
     Active Substance: LITHIUM
     Indication: Hallucination, auditory
     Dosage: UNK
     Route: 065

REACTIONS (5)
  - Diabetes mellitus [Unknown]
  - Injection site pain [Unknown]
  - Psoriasis [Unknown]
  - Skin lesion [Unknown]
  - Wrong technique in product usage process [Unknown]

NARRATIVE: CASE EVENT DATE: 20221018
